FAERS Safety Report 9305540 (Version 4)
Quarter: 2013Q3

REPORT INFORMATION
  Report Type: Report from Study
  Country: FR (occurrence: FR)
  Receive Date: 20130523
  Receipt Date: 20130926
  Transmission Date: 20140515
  Serious: Yes (Hospitalization)
  Sender: FDA-Public Use
  Company Number: FR-ROCHE-1225151

PATIENT
  Age: 37 Year
  Sex: Female

DRUGS (48)
  1. PERTUZUMAB [Suspect]
     Indication: BREAST CANCER METASTATIC
     Route: 042
     Dates: start: 20130107, end: 20130107
  2. PERTUZUMAB [Suspect]
     Dosage: THE LAST DOSE WAS RECEIVED ON 07/MAY/2013
     Route: 042
     Dates: start: 20130204
  3. TRASTUZUMAB [Suspect]
     Indication: BREAST CANCER METASTATIC
     Dosage: 365MG
     Route: 042
     Dates: start: 20130107, end: 20130107
  4. TRASTUZUMAB [Suspect]
     Dosage: THE LAST DOSE WAS RECEIVED ON 07/MAY/2013
     Route: 042
     Dates: start: 20130204
  5. PACLITAXEL [Suspect]
     Indication: BREAST CANCER METASTATIC
     Dosage: DATE OF LAST DOSE PRIOR TO SAE: 07/MAY/2013
     Route: 042
     Dates: start: 20130107
  6. ALDACTAZINE [Concomitant]
     Route: 065
     Dates: start: 20130402
  7. DIFFU-K [Concomitant]
     Route: 065
     Dates: start: 20130312
  8. DIFFU-K [Concomitant]
     Route: 065
     Dates: start: 201212
  9. ACTISKENAN [Concomitant]
     Indication: PAIN PROPHYLAXIS
     Route: 065
     Dates: start: 20130111
  10. ACTISKENAN [Concomitant]
     Route: 065
     Dates: start: 20121226
  11. ZOMETA [Concomitant]
     Route: 065
     Dates: start: 20130107
  12. SEROPLEX [Concomitant]
     Route: 065
     Dates: start: 201301
  13. ESOMEPRAZOLE [Concomitant]
     Route: 065
     Dates: end: 20130102
  14. LUMIRELAX [Concomitant]
     Route: 065
     Dates: end: 20130121
  15. LYRICA [Concomitant]
     Route: 065
  16. MONOCRIXO [Concomitant]
     Indication: PAIN PROPHYLAXIS
     Route: 065
     Dates: end: 20130121
  17. LYSANXIA [Concomitant]
     Route: 065
     Dates: end: 20130402
  18. CELESTENE [Concomitant]
     Indication: PAIN PROPHYLAXIS
     Route: 065
     Dates: start: 201208, end: 20130121
  19. KLIPAL CODEINE [Concomitant]
     Indication: PAIN PROPHYLAXIS
     Route: 065
     Dates: end: 20130102
  20. DUROGESIC [Concomitant]
     Indication: PAIN PROPHYLAXIS
     Route: 065
     Dates: end: 20130528
  21. LAROXYL [Concomitant]
     Indication: PAIN PROPHYLAXIS
     Route: 065
     Dates: start: 201212
  22. LASILIX [Concomitant]
     Indication: HYPERTENSION
     Route: 065
     Dates: start: 201212, end: 20130121
  23. VITAMIN C [Concomitant]
     Indication: ASTHENIA
     Route: 065
     Dates: start: 201212, end: 20130121
  24. INEXIUM [Concomitant]
     Indication: GASTROOESOPHAGEAL REFLUX PROPHYLAXIS
     Route: 065
     Dates: start: 201212, end: 20130226
  25. FUROSEMIDE [Concomitant]
     Indication: HYPERTENSION
     Route: 065
     Dates: start: 201212, end: 20130121
  26. LOVENOX [Concomitant]
     Indication: ANTICOAGULANT THERAPY
     Route: 058
     Dates: start: 201212, end: 20130319
  27. IMODIUM [Concomitant]
     Indication: DIARRHOEA
     Route: 065
     Dates: start: 20130128, end: 20130226
  28. ZOPHREN [Concomitant]
     Indication: PROPHYLACTIC CHEMOTHERAPY
     Route: 065
     Dates: start: 20130128, end: 20130128
  29. POLARAMINE [Concomitant]
     Indication: PROPHYLACTIC CHEMOTHERAPY
     Route: 065
     Dates: start: 20130128, end: 20130128
  30. POLARAMINE [Concomitant]
     Route: 065
     Dates: start: 20130507, end: 20130507
  31. POLARAMINE [Concomitant]
     Route: 065
     Dates: start: 20130709, end: 20130709
  32. POLARAMINE [Concomitant]
     Route: 065
     Dates: start: 20130730, end: 20130730
  33. AZANTAC [Concomitant]
     Indication: PROPHYLACTIC CHEMOTHERAPY
     Route: 065
     Dates: start: 20130128, end: 20130128
  34. ACUPAN [Concomitant]
     Indication: PROPHYLACTIC CHEMOTHERAPY
     Route: 065
     Dates: start: 20130128
  35. OXYNORM [Concomitant]
     Route: 065
     Dates: start: 20130312
  36. MYOLASTAN [Concomitant]
     Route: 065
     Dates: start: 20130312
  37. PARACETAMOL [Concomitant]
     Route: 065
     Dates: start: 20130228, end: 20130309
  38. DOLIPRANE [Concomitant]
     Indication: PAIN PROPHYLAXIS
     Route: 065
     Dates: start: 20130409, end: 20130409
  39. DOLIPRANE [Concomitant]
     Route: 065
     Dates: start: 201307, end: 20130709
  40. THERALENE (FRANCE) [Concomitant]
     Route: 065
     Dates: start: 201304, end: 20130528
  41. ALDACTAZINE [Concomitant]
     Route: 065
     Dates: start: 20130409, end: 20130528
  42. XYZALL [Concomitant]
     Indication: PYREXIA
     Route: 065
     Dates: start: 20130507, end: 20130510
  43. ROCEPHINE [Concomitant]
     Route: 065
     Dates: start: 20130107, end: 20130115
  44. SOLU-MEDROL [Concomitant]
     Indication: PROPHYLACTIC CHEMOTHERAPY
     Route: 065
     Dates: start: 20130128, end: 20130128
  45. IMOVANE [Concomitant]
     Route: 065
     Dates: start: 201304
  46. TIORFAN [Concomitant]
     Route: 065
     Dates: start: 20130904, end: 20130906
  47. SMECTA (FRANCE) [Concomitant]
     Route: 065
     Dates: start: 20130904, end: 20130906
  48. OFLOCET (FRANCE) [Concomitant]
     Route: 065
     Dates: start: 20130910

REACTIONS (1)
  - Lung disorder [Recovered/Resolved]
